FAERS Safety Report 10892464 (Version 1)
Quarter: 2015Q1

REPORT INFORMATION
  Report Type: Spontaneous
  Country: DK (occurrence: DK)
  Receive Date: 20150306
  Receipt Date: 20150306
  Transmission Date: 20150721
  Serious: Yes (Other)
  Sender: FDA-Public Use
  Company Number: PHHY2015DK022397

PATIENT
  Sex: Female

DRUGS (1)
  1. HEXAMYCIN [Suspect]
     Active Substance: GENTAMICIN
     Indication: FEBRILE NEUTROPENIA
     Dosage: 400 MG, QD
     Route: 065
     Dates: start: 20111121

REACTIONS (4)
  - Pain in extremity [Recovered/Resolved]
  - Obsessive thoughts [Recovered/Resolved]
  - Schizophrenia [Recovered/Resolved]
  - Visual impairment [Not Recovered/Not Resolved]
